FAERS Safety Report 5001960-0 (Version None)
Quarter: 2006Q2

REPORT INFORMATION
  Report Type: 
  Country: None (occurrence: None)
  Receive Date: 20060515
  Receipt Date: 20051031
  Transmission Date: 20061013
  Serious: Yes (Hospitalization)
  Sender: FDA-Public Use
  Company Number: US-MERCK-0511USA00342

PATIENT
  Age: 51 Year
  Sex: Male
  Weight: 84 kg

DRUGS (27)
  1. VIOXX [Suspect]
     Indication: OSTEOARTHRITIS
     Route: 048
     Dates: start: 20001017, end: 20040501
  2. VIOXX [Suspect]
     Route: 048
     Dates: start: 20001017, end: 20040501
  3. ASPIRIN [Concomitant]
     Route: 065
     Dates: start: 19980101
  4. PEPCID [Concomitant]
     Route: 065
  5. ZOCOR [Concomitant]
     Route: 065
     Dates: start: 19980101
  6. FUROSEMIDE [Concomitant]
     Route: 065
  7. PAXIL [Concomitant]
     Route: 065
  8. CEPHALEXIN [Concomitant]
     Route: 065
  9. ALPRAZOLAM [Concomitant]
     Route: 065
  10. KLOR-CON [Concomitant]
     Route: 065
  11. CELEBREX [Concomitant]
     Route: 065
  12. IBUPROFEN [Concomitant]
     Route: 065
  13. ALTACE [Concomitant]
     Route: 065
  14. CRESTOR [Concomitant]
     Route: 065
  15. HYDROCHLOROTHIAZIDE [Concomitant]
     Route: 065
  16. TRAZODONE HYDROCHLORIDE [Concomitant]
     Route: 065
  17. TENORMIN [Concomitant]
     Route: 065
  18. IMDUR [Concomitant]
     Route: 065
  19. ACETAMINOPHEN AND CODEINE [Concomitant]
     Route: 065
  20. FLURBIPROFEN [Concomitant]
     Route: 065
  21. COZAAR [Concomitant]
     Route: 065
  22. ALEVE (CAPLET) [Concomitant]
     Route: 065
  23. ACETAMINOPHEN AND PROPOXYPHENE NAPSYLATE [Concomitant]
     Route: 065
  24. ECOTRIN [Concomitant]
     Route: 065
  25. NITROLINGUAL [Concomitant]
     Route: 065
  26. ADVIL [Concomitant]
     Route: 065
  27. TYLENOL (CAPLET) [Concomitant]
     Route: 065

REACTIONS (5)
  - ARTERIOSCLEROSIS [None]
  - CARDIAC VALVE DISEASE [None]
  - DYSPEPSIA [None]
  - MYOCARDIAL INFARCTION [None]
  - OVERDOSE [None]
